FAERS Safety Report 24708679 (Version 1)
Quarter: 2024Q4

REPORT INFORMATION
  Report Type: Spontaneous
  Country: FR (occurrence: FR)
  Receive Date: 20241207
  Receipt Date: 20241207
  Transmission Date: 20250115
  Serious: Yes (Life-Threatening)
  Sender: ACCORD
  Company Number: None

PATIENT
  Age: 78 Year
  Sex: Female
  Weight: 48 kg

DRUGS (7)
  1. METHOTREXATE [Suspect]
     Active Substance: METHOTREXATE
     Indication: Polyarthritis
     Dates: end: 20240930
  2. ELIQUIS [Concomitant]
     Active Substance: APIXABAN
     Dosage: STRENGTH: 2.5 MG
  3. ESCITALOPRAM [Concomitant]
     Active Substance: ESCITALOPRAM OXALATE
  4. FLECAINIDE [Concomitant]
     Active Substance: FLECAINIDE
     Dosage: STRENGTH: 100 MG
  5. GABAPENTIN [Concomitant]
     Active Substance: GABAPENTIN
  6. ZOPICLONE [Concomitant]
     Active Substance: ZOPICLONE
  7. METHOTREXATE [Suspect]
     Active Substance: METHOTREXATE
     Indication: Polyarthritis
     Dates: start: 20240930, end: 20241015

REACTIONS (7)
  - Drug eruption [Recovering/Resolving]
  - Mucosal inflammation [Recovering/Resolving]
  - Cheilitis [Recovering/Resolving]
  - Pancytopenia [Recovered/Resolved]
  - Overdose [Recovered/Resolved]
  - Product dispensing error [Recovered/Resolved]
  - Wrong schedule [Recovered/Resolved]

NARRATIVE: CASE EVENT DATE: 20240930
